FAERS Safety Report 14773814 (Version 1)
Quarter: 2018Q2

REPORT INFORMATION
  Report Type: Spontaneous
  Country: GB (occurrence: IT)
  Receive Date: 20180418
  Receipt Date: 20180418
  Transmission Date: 20180711
  Serious: Yes (Hospitalization)
  Sender: FDA-Public Use
  Company Number: GB-BAYER-2018-072463

PATIENT
  Age: 57 Year
  Sex: Male

DRUGS (5)
  1. CARDIOASPIRIN 100 MG [Suspect]
     Active Substance: ASPIRIN
     Indication: CARDIOVASCULAR EVENT PROPHYLAXIS
     Dosage: 100 MG, QD
     Route: 048
     Dates: start: 20170101, end: 20170929
  2. COMBISARTAN [Concomitant]
     Active Substance: HYDROCHLOROTHIAZIDE\VALSARTAN
  3. NORVASC [Concomitant]
     Active Substance: AMLODIPINE BESYLATE
  4. FULCRO [Concomitant]
     Active Substance: FENOFIBRATE
  5. PLAVIX [Suspect]
     Active Substance: CLOPIDOGREL BISULFATE
     Indication: CARDIOVASCULAR EVENT PROPHYLAXIS
     Dosage: 75 MG, QD
     Route: 048
     Dates: start: 20170101, end: 20170929

REACTIONS (2)
  - Cough [Unknown]
  - Haemoptysis [Unknown]

NARRATIVE: CASE EVENT DATE: 20170929
